FAERS Safety Report 9753843 (Version 1)
Quarter: 2013Q4

REPORT INFORMATION
  Report Type: Spontaneous
  Country: US (occurrence: US)
  Receive Date: 20131213
  Receipt Date: 20131213
  Transmission Date: 20140711
  Serious: No
  Sender: FDA-Public Use
  Company Number: US-GILEAD-2010-0027747

PATIENT
  Age: 78 Year
  Sex: Female

DRUGS (10)
  1. LETAIRIS [Suspect]
     Indication: PULMONARY ARTERIAL HYPERTENSION
     Route: 048
     Dates: start: 20100110
  2. TIAZAC [Concomitant]
  3. SIMVASTATIN [Concomitant]
  4. LASIX [Concomitant]
  5. PLAVIX [Concomitant]
  6. MINOCYCLINE [Concomitant]
  7. RECLAST [Concomitant]
  8. NEXIUM [Concomitant]
  9. LEVOTHYROXIN [Concomitant]
  10. POTASSIUM CHLORIDE [Concomitant]

REACTIONS (1)
  - Skin exfoliation [Recovering/Resolving]
